FAERS Safety Report 6964594-4 (Version None)
Quarter: 2010Q3

REPORT INFORMATION
  Report Type: 
  Country: None (occurrence: None)
  Receive Date: 20100903
  Receipt Date: 20100831
  Transmission Date: 20110219
  Serious: Yes (Other)
  Sender: FDA-Public Use
  Company Number: US-ASTRAZENECA-2007UW03011

PATIENT
  Age: 23 Year
  Sex: Male
  Weight: 63.5 kg

DRUGS (11)
  1. SEROQUEL [Suspect]
     Indication: SCHIZOPHRENIA
     Route: 048
     Dates: start: 20050905, end: 20051115
  2. SEROQUEL [Suspect]
     Route: 048
     Dates: start: 20051122, end: 20060128
  3. RISPERDAL [Suspect]
     Indication: SCHIZOPHRENIA
     Dosage: 3-4 MG
     Dates: start: 20030423, end: 20060524
  4. ZYPREXA [Concomitant]
     Indication: SCHIZOPHRENIA
     Dates: start: 20071017, end: 20071101
  5. PROZAC [Concomitant]
     Indication: DEPRESSION
     Dates: start: 20050101
  6. ABILIFY [Concomitant]
     Dosage: 10-15 MG
     Dates: start: 20040101, end: 20070101
  7. HALDOL [Concomitant]
     Dosage: 50-10 MG
     Dates: start: 20030101, end: 20100101
  8. DEPAKOTE [Concomitant]
     Dates: start: 20030101
  9. TRAZODONE HCL [Concomitant]
     Dates: start: 20070101, end: 20080101
  10. ZOLOFT [Concomitant]
     Dates: start: 20080101
  11. EFFEXOR XR [Concomitant]
     Dates: start: 20070101

REACTIONS (2)
  - NERVOUS SYSTEM DISORDER [None]
  - TARDIVE DYSKINESIA [None]
